FAERS Safety Report 22629913 (Version 1)
Quarter: 2023Q2

REPORT INFORMATION
  Report Type: Spontaneous
  Country: IT (occurrence: IT)
  Receive Date: 20230622
  Receipt Date: 20230622
  Transmission Date: 20230721
  Serious: Yes (Life-Threatening)
  Sender: FDA-Public Use
  Company Number: None

PATIENT
  Age: 51 Year
  Sex: Female

DRUGS (2)
  1. ADALIMUMAB [Suspect]
     Active Substance: ADALIMUMAB
     Indication: Spondylitis
     Route: 058
     Dates: start: 202011, end: 202302
  2. METHOTREXATE [Concomitant]
     Active Substance: METHOTREXATE
     Indication: Spondylitis
     Dosage: UNKNOWN
     Route: 065
     Dates: start: 202006

REACTIONS (2)
  - Sarcoma [Not Recovered/Not Resolved]
  - Product use in unapproved indication [Unknown]

NARRATIVE: CASE EVENT DATE: 20230101
